FAERS Safety Report 21854255 (Version 1)
Quarter: 2023Q1

REPORT INFORMATION
  Report Type: Spontaneous
  Country: US (occurrence: US)
  Receive Date: 20230112
  Receipt Date: 20230112
  Transmission Date: 20230417
  Serious: No
  Sender: FDA-Public Use
  Company Number: US-PFIZER INC-202300012946

PATIENT
  Age: 66 Year
  Sex: Female
  Weight: 73.94 kg

DRUGS (2)
  1. PAXLOVID [Interacting]
     Active Substance: NIRMATRELVIR\RITONAVIR
     Indication: COVID-19
     Dosage: [PF-07321332 300 MG]/[RITONAVIR 100 MG]; 2X/DAY
     Dates: start: 20221230, end: 20230103
  2. JAKAFI [Interacting]
     Active Substance: RUXOLITINIB
     Indication: Myelofibrosis
     Dosage: 10 MG, 2X/DAY
     Route: 048
     Dates: start: 2017

REACTIONS (3)
  - Drug interaction [Not Recovered/Not Resolved]
  - Pruritus [Not Recovered/Not Resolved]
  - Disease recurrence [Not Recovered/Not Resolved]
